FAERS Safety Report 23424997 (Version 2)
Quarter: 2024Q1

REPORT INFORMATION
  Report Type: Report from Study
  Country: US (occurrence: US)
  Receive Date: 20240121
  Receipt Date: 20240219
  Transmission Date: 20240410
  Serious: Yes (Hospitalization, Other)
  Sender: FDA-Public Use
  Company Number: US-SANDOZ-SDZ2023US055741

PATIENT
  Sex: Female
  Weight: 72.562 kg

DRUGS (2)
  1. TREPROSTINIL [Suspect]
     Active Substance: TREPROSTINIL
     Dosage: UNK UNK, CONT, 91 NG/KG/ MIN
     Route: 042
     Dates: start: 20230314
  2. TREPROSTINIL [Suspect]
     Active Substance: TREPROSTINIL
     Indication: Pulmonary arterial hypertension
     Dosage: 91 NG/KG/ MIN, CONT,2.5MG/ML
     Route: 042
     Dates: start: 20230314

REACTIONS (5)
  - Weight increased [Unknown]
  - Infusion site infection [Unknown]
  - Urticaria [Unknown]
  - Soft tissue infection [Unknown]
  - Rash [Unknown]
